FAERS Safety Report 13707687 (Version 1)
Quarter: 2017Q2

REPORT INFORMATION
  Report Type: Spontaneous
  Country: FR (occurrence: FR)
  Receive Date: 20170630
  Receipt Date: 20170630
  Transmission Date: 20170830
  Serious: Yes (Hospitalization, Other)
  Sender: FDA-Public Use
  Company Number: FR-PFIZER INC-2017280148

PATIENT
  Age: 100 Year
  Sex: Female

DRUGS (11)
  1. CLOPIDOGREL [Concomitant]
     Active Substance: CLOPIDOGREL BISULFATE
     Dosage: 75 MG, AT NOON
  2. PARACETAMOL [Concomitant]
     Active Substance: ACETAMINOPHEN
     Dosage: 2 CAPSULES, IN THE MORNING AND IN THE EVENING
  3. SOLUPRED [Concomitant]
     Active Substance: PREDNISOLONE
     Indication: TOOTH INFECTION
     Dosage: UNK
     Dates: start: 20160629
  4. METOPROLOL. [Concomitant]
     Active Substance: METOPROLOL
     Dosage: 25 MG, IN THE MORNING AND IN THE EVENING
  5. MIRTAZAPINE. [Concomitant]
     Active Substance: MIRTAZAPINE
     Dosage: 15 MG, IN THE EVENING
  6. PANTOPRAZOLE [Concomitant]
     Active Substance: PANTOPRAZOLE
     Dosage: 20 MG, ONCE IN THE EVENING
  7. RAMIPRIL. [Concomitant]
     Active Substance: RAMIPRIL
     Dosage: 2.5 MG, IN THE MORNING
  8. POTASSIUM CHLORIDE. [Concomitant]
     Active Substance: POTASSIUM CHLORIDE
     Dosage: 600 MG, IN THE MORNING AND AT NOON
  9. PREGABALIN. [Concomitant]
     Active Substance: PREGABALIN
     Dosage: 75 MG, IN THE MORNING AND IN THE EVENING
  10. SERETIDE [Concomitant]
     Active Substance: FLUTICASONE PROPIONATE\SALMETEROL XINAFOATE
     Dosage: 2 DF, IN THE MORNING AND IN THE EVENING WITH THE INHALATOR, FOR ONE MONTH
     Route: 055
  11. DALACINE [Suspect]
     Active Substance: CLINDAMYCIN HYDROCHLORIDE
     Indication: TOOTH INFECTION
     Dosage: UNK UNK, 2X/DAY
     Route: 048
     Dates: start: 20160629, end: 20160704

REACTIONS (4)
  - Angioedema [Recovered/Resolved]
  - Hypersensitivity [Recovered/Resolved]
  - Dyspnoea [Recovered/Resolved]
  - Macroglossia [Recovered/Resolved]

NARRATIVE: CASE EVENT DATE: 20160704
